FAERS Safety Report 7327879-8 (Version None)
Quarter: 2011Q1

REPORT INFORMATION
  Report Type: 
  Country: None (occurrence: None)
  Receive Date: 20110303
  Receipt Date: 20110209
  Transmission Date: 20110831
  Serious: Yes (Hospitalization)
  Sender: FDA-Public Use
  Company Number: KR-JNJFOC-20110200210

PATIENT
  Sex: Female
  Weight: 49.6 kg

DRUGS (13)
  1. GOLIMUMAB [Suspect]
     Indication: RHEUMATOID ARTHRITIS
     Route: 058
  2. PANTOLINE [Concomitant]
     Indication: REFLUX OESOPHAGITIS
     Route: 048
  3. ADCAL [Concomitant]
     Route: 048
  4. BONIVA [Concomitant]
     Route: 042
  5. FOLIN [Concomitant]
     Route: 048
  6. PANTOLINE [Concomitant]
     Indication: GASTRITIS
     Route: 048
  7. NIFERON CR [Concomitant]
     Route: 048
  8. SOMALGEN [Concomitant]
     Route: 048
  9. STILLEN [Concomitant]
     Indication: GASTROINTESTINAL DISORDER THERAPY
     Route: 048
  10. GOLIMUMAB [Suspect]
     Route: 058
  11. METHOTREXATE [Suspect]
     Indication: RHEUMATOID ARTHRITIS
     Route: 048
  12. METHOTREXATE [Concomitant]
     Route: 048
  13. METHYLPREDNISOLONE [Concomitant]
     Route: 048

REACTIONS (2)
  - ADENOMA BENIGN [None]
  - GASTRITIS HAEMORRHAGIC [None]
